FAERS Safety Report 9832002 (Version 1)
Quarter: 2014Q1

REPORT INFORMATION
  Report Type: Spontaneous
  Country: US (occurrence: US)
  Receive Date: 20140121
  Receipt Date: 20140121
  Transmission Date: 20141002
  Serious: Yes (Hospitalization, Other)
  Sender: FDA-Public Use
  Company Number: US-ASTRAZENECA-2014SE02984

PATIENT
  Age: 81 Year
  Sex: Female
  Weight: 79.4 kg

DRUGS (10)
  1. NEXIUM [Suspect]
     Indication: GASTRIC ULCER
     Route: 048
  2. NEXIUM [Suspect]
     Indication: GASTROOESOPHAGEAL REFLUX DISEASE
     Route: 048
  3. NEXIUM [Suspect]
     Indication: GASTRIC ULCER
     Route: 048
     Dates: start: 2011
  4. NEXIUM [Suspect]
     Indication: GASTROOESOPHAGEAL REFLUX DISEASE
     Route: 048
     Dates: start: 2011
  5. TRIAMTERENE HCTZ [Concomitant]
     Indication: BLOOD PRESSURE ABNORMAL
     Dosage: 37.5 25 MG DAILY
     Route: 048
     Dates: start: 2012
  6. LIPITOR [Concomitant]
     Indication: BLOOD CHOLESTEROL ABNORMAL
     Route: 048
  7. FOSINOPRIL SODIUM [Concomitant]
     Indication: BLOOD PRESSURE ABNORMAL
     Route: 048
  8. TOVIAZ ER [Concomitant]
     Indication: BLADDER DISORDER
     Route: 048
  9. SYNTHROID [Concomitant]
     Indication: WEIGHT INCREASED
     Route: 048
  10. TEMAZEPAM [Concomitant]
     Indication: SLEEP DISORDER
     Route: 048

REACTIONS (11)
  - Chest pain [Unknown]
  - Cataract [Unknown]
  - Joint injury [Unknown]
  - Peptic ulcer [Unknown]
  - Lyme disease [Unknown]
  - Ulcer [Unknown]
  - Pain [Unknown]
  - Abdominal discomfort [Not Recovered/Not Resolved]
  - Drug dose omission [Unknown]
  - Drug ineffective [Unknown]
  - Off label use [Unknown]
